FAERS Safety Report 8275163-0 (Version None)
Quarter: 2012Q2

REPORT INFORMATION
  Report Type: 
  Country: None (occurrence: None)
  Receive Date: 20120411
  Receipt Date: 20120405
  Transmission Date: 20120825
  Serious: Yes (Death, Hospitalization)
  Sender: FDA-Public Use
  Company Number: PHHY2012DK030341

PATIENT
  Age: 81 Year
  Sex: Male

DRUGS (5)
  1. RITUXIMAB [Suspect]
     Dosage: 1000 MG, UNK
  2. METHYLPREDNISOLONE [Suspect]
     Indication: SCLERITIS
     Dosage: 1000 MG, DAILY
     Route: 042
  3. PREDNISOLONE [Suspect]
     Indication: SCLERITIS
     Dosage: 100 MG, DAILY
     Route: 048
  4. PREDNISOLONE [Suspect]
     Dosage: 30 MG, DAILY
     Route: 048
  5. CASPOFUNGIN ACETATE [Concomitant]

REACTIONS (12)
  - HYPOXIA [None]
  - C-REACTIVE PROTEIN INCREASED [None]
  - ANURIA [None]
  - RENAL FUNCTION TEST ABNORMAL [None]
  - PYREXIA [None]
  - LUNG INFILTRATION [None]
  - COMA [None]
  - RESPIRATORY FAILURE [None]
  - PNEUMOTHORAX [None]
  - NEUTROPHILIA [None]
  - PNEUMOCYSTIS JIROVECI PNEUMONIA [None]
  - MYOCARDIAL INFARCTION [None]
